FAERS Safety Report 4675169-4 (Version None)
Quarter: 2005Q2

REPORT INFORMATION
  Report Type: 
  Country: None (occurrence: None)
  Receive Date: 20050526
  Receipt Date: 20050512
  Transmission Date: 20051028
  Serious: Yes (Hospitalization, Other)
  Sender: FDA-Public Use
  Company Number: 2005051608

PATIENT
  Age: 34 Year
  Sex: Male
  Weight: 81.6475 kg

DRUGS (10)
  1. NEURONTIN [Suspect]
     Indication: BIPOLAR DISORDER
     Dosage: 3600 MG (1200 MG, 3 IN 1 D), ORAL
     Route: 048
     Dates: start: 20030101, end: 20040101
  2. NEURONTIN [Suspect]
     Indication: INTERMITTENT EXPLOSIVE DISORDER
     Dosage: 3600 MG (1200 MG, 3 IN 1 D), ORAL
     Route: 048
     Dates: start: 20030101, end: 20040101
  3. STRATTERA [Concomitant]
  4. HEROIN (DIAMORPHINE) [Concomitant]
  5. COCAINE (COCAINE) [Concomitant]
  6. CANNABIS (CANNABIS) [Concomitant]
  7. VALIUM [Concomitant]
  8. VICODIN [Concomitant]
  9. PERCOCET [Concomitant]
  10. NEXIUM [Concomitant]

REACTIONS (4)
  - DEPRESSED LEVEL OF CONSCIOUSNESS [None]
  - RESPIRATORY ARREST [None]
  - SLEEP DISORDER [None]
  - SUICIDE ATTEMPT [None]
